FAERS Safety Report 18756637 (Version 1)
Quarter: 2021Q1

REPORT INFORMATION
  Report Type: Spontaneous
  Country: US (occurrence: US)
  Receive Date: 20210119
  Receipt Date: 20210119
  Transmission Date: 20210419
  Serious: Yes (Hospitalization)
  Sender: FDA-Public Use
  Company Number: US-FRESENIUS KABI-FK202100660

PATIENT
  Age: 31 Year
  Sex: Male

DRUGS (4)
  1. TETRABENAZINE. [Suspect]
     Active Substance: TETRABENAZINE
     Indication: BALLISMUS
     Dosage: UNKNOWN
     Route: 065
  2. HALOPERIDOL INJECTION (MANUFACTURER UNKNOWN) [Suspect]
     Active Substance: HALOPERIDOL LACTATE
     Indication: BALLISMUS
  3. TETRABENAZINE. [Suspect]
     Active Substance: TETRABENAZINE
     Indication: CHOREA
  4. HALOPERIDOL INJECTION (MANUFACTURER UNKNOWN) [Suspect]
     Active Substance: HALOPERIDOL LACTATE
     Indication: CHOREA
     Dosage: UNKNOWN
     Route: 065

REACTIONS (3)
  - Diarrhoea [Unknown]
  - Sedation [Unknown]
  - Altered state of consciousness [Unknown]
